FAERS Safety Report 10306704 (Version 1)
Quarter: 2014Q3

REPORT INFORMATION
  Report Type: Spontaneous
  Country: US (occurrence: US)
  Receive Date: 20140715
  Receipt Date: 20140715
  Transmission Date: 20150326
  Serious: No
  Sender: FDA-Public Use
  Company Number: US-009507513-1407USA006607

PATIENT
  Age: 52 Year
  Sex: Male

DRUGS (3)
  1. HYDROCORTONE [Concomitant]
     Active Substance: HYDROCORTISONE
     Route: 048
  2. HYDROCODONE [Concomitant]
     Active Substance: HYDROCODONE
  3. PEGINTRON [Suspect]
     Active Substance: PEGINTERFERON ALFA-2B
     Indication: HEPATITIS C
     Dosage: PEGINTRON REDIPEN 150 MCG/0.5ML
     Dates: start: 20140619

REACTIONS (6)
  - Headache [Not Recovered/Not Resolved]
  - Nausea [Not Recovered/Not Resolved]
  - Decreased appetite [Not Recovered/Not Resolved]
  - Fatigue [Not Recovered/Not Resolved]
  - Asthenia [Not Recovered/Not Resolved]
  - Pain [Not Recovered/Not Resolved]

NARRATIVE: CASE EVENT DATE: 20140619
